FAERS Safety Report 20809681 (Version 1)
Quarter: 2022Q2

REPORT INFORMATION
  Report Type: Spontaneous
  Country: US (occurrence: US)
  Receive Date: 20220510
  Receipt Date: 20220510
  Transmission Date: 20220721
  Serious: No
  Sender: FDA-Public Use
  Company Number: US-OYSTER POINT PHARMA, INC.-2022OYS00223

PATIENT
  Age: 75 Year
  Sex: Female
  Weight: 76.644 kg

DRUGS (6)
  1. TYRVAYA [Suspect]
     Active Substance: VARENICLINE TARTRATE
     Indication: Dry eye
     Dosage: UNK UNK, 2X/DAY
     Route: 045
     Dates: start: 20220212, end: 20220219
  2. XIIDRA [Concomitant]
     Active Substance: LIFITEGRAST
  3. FENOPROFEN [Concomitant]
     Active Substance: FENOPROFEN
  4. ALLEGRA [Concomitant]
     Active Substance: FEXOFENADINE HYDROCHLORIDE
  5. ZEGERID [Concomitant]
     Active Substance: OMEPRAZOLE\SODIUM BICARBONATE
  6. PROLIA [Concomitant]
     Active Substance: DENOSUMAB

REACTIONS (2)
  - Epistaxis [Recovered/Resolved]
  - Chest pain [Recovered/Resolved]

NARRATIVE: CASE EVENT DATE: 20220201
